FAERS Safety Report 6176285-0 (Version None)
Quarter: 2009Q2

REPORT INFORMATION
  Report Type: 
  Country: None (occurrence: None)
  Receive Date: 20090501
  Receipt Date: 20090428
  Transmission Date: 20091009
  Serious: Yes (Other)
  Sender: FDA-Public Use
  Company Number: D0061450A

PATIENT
  Sex: Female

DRUGS (2)
  1. ELONTRIL [Suspect]
     Route: 048
     Dates: start: 20090428, end: 20090428
  2. CITALOPRAM HYDROBROMIDE [Suspect]
     Route: 048
     Dates: start: 20090428, end: 20090428

REACTIONS (6)
  - FATIGUE [None]
  - INTENTIONAL OVERDOSE [None]
  - MYDRIASIS [None]
  - SOMNOLENCE [None]
  - SUICIDE ATTEMPT [None]
  - TREMOR [None]
